FAERS Safety Report 19417907 (Version 1)
Quarter: 2021Q2

REPORT INFORMATION
  Report Type: Spontaneous
  Country: NO (occurrence: NO)
  Receive Date: 20210615
  Receipt Date: 20210615
  Transmission Date: 20210717
  Serious: Yes (Death, Hospitalization, Other)
  Sender: FDA-Public Use
  Company Number: NO-SA-2021SA195707

PATIENT
  Age: 91 Year
  Sex: Male

DRUGS (2)
  1. RIFAMPICIN [Suspect]
     Active Substance: RIFAMPIN
     Indication: ENDOCARDITIS
     Dosage: 1350 MG, QD
     Route: 048
     Dates: start: 20210329, end: 20210406
  2. CLOXACILLIN [Concomitant]
     Active Substance: CLOXACILLIN
     Indication: ARTHRITIS BACTERIAL
     Route: 042
     Dates: start: 20210319

REACTIONS (2)
  - Dermatitis bullous [Not Recovered/Not Resolved]
  - Rash papular [Not Recovered/Not Resolved]

NARRATIVE: CASE EVENT DATE: 2021
